FAERS Safety Report 9630493 (Version 4)
Quarter: 2014Q4

REPORT INFORMATION
  Report Type: Report from Study
  Country: AU (occurrence: AU)
  Receive Date: 20131018
  Receipt Date: 20141201
  Transmission Date: 20150529
  Serious: Yes (Hospitalization)
  Sender: FDA-Public Use
  Company Number: AU-009507513-1310AUS004526

PATIENT
  Age: 24 Year
  Sex: Female

DRUGS (9)
  1. EFFEXOR [Concomitant]
     Active Substance: VENLAFAXINE HYDROCHLORIDE
     Indication: DEPRESSION
     Dosage: 150 MG UNK, UNK
     Dates: start: 201210
  2. EFFEXOR [Concomitant]
     Active Substance: VENLAFAXINE HYDROCHLORIDE
     Dosage: 225 MG, QD
     Route: 048
  3. LEVLEN [Concomitant]
     Active Substance: ETHINYL ESTRADIOL\LEVONORGESTREL
     Indication: CONTRACEPTION
     Dosage: 1 DOSAGE (100 UG/200 UG), QD
     Route: 048
     Dates: start: 2007
  4. AVANZA [Concomitant]
     Active Substance: MIRTAZAPINE
     Dosage: THREE 30 MG INCLUDING THE DAILY DOSE.
     Dates: start: 20130815
  5. EFFEXOR [Concomitant]
     Active Substance: VENLAFAXINE HYDROCHLORIDE
     Dosage: 5 TABLETS X 75 MG: 375 MG, QD (DOSE INCREASED DUE TO EXACERBATION OF DEPRESSION)
     Route: 048
     Dates: start: 20130628
  6. THERAPY UNSPECIFIED [Suspect]
     Active Substance: UNSPECIFIED INGREDIENT
  7. AVANZA [Concomitant]
     Active Substance: MIRTAZAPINE
     Indication: DEPRESSION
     Dosage: 30 MG, QD
     Route: 048
     Dates: start: 201301
  8. EFFEXOR [Concomitant]
     Active Substance: VENLAFAXINE HYDROCHLORIDE
     Dosage: 9 TABLETS, 675 MG, ONCE
     Route: 048
     Dates: start: 20130805, end: 20130805
  9. ACETAMINOPHEN. [Concomitant]
     Active Substance: ACETAMINOPHEN
     Dosage: UNK
     Dates: start: 20130805, end: 20130805

REACTIONS (2)
  - Intentional overdose [Recovered/Resolved]
  - Headache [Recovered/Resolved]

NARRATIVE: CASE EVENT DATE: 20130805
